FAERS Safety Report 20217107 (Version 1)
Quarter: 2021Q4

REPORT INFORMATION
  Report Type: Spontaneous
  Country: DE (occurrence: DE)
  Receive Date: 20211222
  Receipt Date: 20211222
  Transmission Date: 20220303
  Serious: Yes (Hospitalization)
  Sender: FDA-Public Use
  Company Number: DE-ADRED-05815-04

PATIENT
  Age: 69 Year
  Sex: Male

DRUGS (7)
  1. GEMCITABINE [Suspect]
     Active Substance: GEMCITABINE
     Indication: Product used for unknown indication
     Dosage: ACCORDING TO SCHEME
     Route: 065
  2. PANTOPRAZOLE [Concomitant]
     Active Substance: PANTOPRAZOLE
     Indication: Product used for unknown indication
     Dosage: 40 MG, 1-0-0-0, PROLONGED-RELEASE TABLET
     Route: 048
  3. INSULIN ASPART [Concomitant]
     Active Substance: INSULIN ASPART
     Indication: Product used for unknown indication
     Dosage: 1 IE, 6-3-3-0, SOLUTION FOR INJECTION/INFUSION
     Route: 058
  4. TINZAPARIN [Concomitant]
     Active Substance: TINZAPARIN
     Indication: Product used for unknown indication
     Dosage: 10000 IE, 0-0-1-0, PRE-FILLED SYRINGES
     Route: 058
  5. INSULIN GLARGINE [Concomitant]
     Active Substance: INSULIN GLARGINE
     Indication: Product used for unknown indication
     Dosage: 1 IE, 0-0-0-6, SOLUTION FOR INJECTION/INFUSION
     Route: 058
  6. LOPERAMIDE HYDROCHLORIDE [Concomitant]
     Active Substance: LOPERAMIDE HYDROCHLORIDE
     Indication: Product used for unknown indication
     Dosage: 2 MG, CAPSULES AS NEEDED
     Route: 048
  7. PANCREAS POWDER [Concomitant]
     Indication: Product used for unknown indication
     Dosage: 25000 IE, 1-1-1-0, RETARD CAPSULES?PANCREAS POWDER FROM PIG
     Route: 048

REACTIONS (7)
  - General physical health deterioration [Unknown]
  - Jaundice [Unknown]
  - Weight decreased [Unknown]
  - Pyrexia [Unknown]
  - Decreased appetite [Unknown]
  - Fatigue [Unknown]
  - Diarrhoea [Unknown]
